APPROVED DRUG PRODUCT: STIVARGA
Active Ingredient: REGORAFENIB
Strength: 40MG
Dosage Form/Route: TABLET;ORAL
Application: N203085 | Product #001
Applicant: BAYER HEALTHCARE PHARMACEUTICALS INC
Approved: Sep 27, 2012 | RLD: Yes | RS: Yes | Type: RX

PATENTS:
Patent 8680124 | Expires: Jun 2, 2030
Patent 9458107 | Expires: Apr 8, 2031
Patent 9957232 | Expires: Jul 9, 2032
Patent 8637553 | Expires: Feb 16, 2031